FAERS Safety Report 10721091 (Version 3)
Quarter: 2016Q2

REPORT INFORMATION
  Report Type: Spontaneous
  Country: US (occurrence: US)
  Receive Date: 20150119
  Receipt Date: 20160524
  Transmission Date: 20160815
  Serious: Yes (Hospitalization, Other)
  Sender: FDA-Public Use
  Company Number: US-ASTELLAS-2015US001418

PATIENT
  Sex: Female

DRUGS (1)
  1. TARCEVA [Suspect]
     Active Substance: ERLOTINIB HYDROCHLORIDE
     Indication: LUNG NEOPLASM MALIGNANT
     Route: 048
     Dates: start: 20141029

REACTIONS (6)
  - Alopecia [Unknown]
  - Gastrointestinal inflammation [Unknown]
  - Pulmonary pain [Unknown]
  - Cardiac arrest [Unknown]
  - Abdominal pain upper [Unknown]
  - Hepatitis [Unknown]
